FAERS Safety Report 7468126-6 (Version None)
Quarter: 2011Q2

REPORT INFORMATION
  Report Type: 
  Country: None (occurrence: None)
  Receive Date: 20110509
  Receipt Date: 20110503
  Transmission Date: 20111010
  Serious: Yes (Hospitalization, Other)
  Sender: FDA-Public Use
  Company Number: US-ELI_LILLY_AND_COMPANY-US201105001050

PATIENT
  Sex: Male

DRUGS (1)
  1. EFFIENT [Suspect]
     Dosage: UNK, UNKNOWN
     Route: 065
     Dates: start: 20110429, end: 20110503

REACTIONS (2)
  - IMPLANTABLE DEFIBRILLATOR INSERTION [None]
  - THROMBOTIC THROMBOCYTOPENIC PURPURA [None]
